FAERS Safety Report 5006473-8 (Version None)
Quarter: 2006Q2

REPORT INFORMATION
  Report Type: 
  Country: None (occurrence: None)
  Receive Date: 20060516
  Receipt Date: 20060508
  Transmission Date: 20061013
  Serious: Yes (Other)
  Sender: FDA-Public Use
  Company Number: 2006044345

PATIENT
  Age: 62 Year
  Sex: Male

DRUGS (2)
  1. NEURONTIN [Suspect]
     Indication: FIBROMYALGIA
     Dosage: 3600 MG (400 MGC, 1 D)
     Dates: start: 20020711
  2. SYNTHROID [Concomitant]

REACTIONS (1)
  - INADEQUATE ANALGESIA [None]
